FAERS Safety Report 4660349-4 (Version None)
Quarter: 2005Q2

REPORT INFORMATION
  Report Type: 
  Country: None (occurrence: None)
  Receive Date: 20050512
  Receipt Date: 20050418
  Transmission Date: 20051028
  Serious: Yes (Life-Threatening, Hospitalization, Other)
  Sender: FDA-Public Use
  Company Number: PHFR2005GB01561

PATIENT
  Age: 23 Year
  Sex: Male

DRUGS (6)
  1. CLOZARIL [Suspect]
     Indication: SCHIZOPHRENIA
     Dosage: 500MG PER DAY
     Route: 048
     Dates: start: 20041201, end: 20050316
  2. CLOZARIL [Suspect]
     Dosage: 300MG PER DAY
     Route: 048
     Dates: start: 20050316, end: 20050407
  3. CLOZARIL [Suspect]
     Dosage: 200MG PER DAY
     Route: 048
     Dates: start: 20050407, end: 20050411
  4. DEPIXOL [Concomitant]
     Dosage: 20MG/DAY
     Route: 030
     Dates: start: 20050121
  5. DEPIXOL [Concomitant]
     Dosage: 40MG/DAY
     Route: 030
     Dates: start: 20050228
  6. DEPIXOL [Concomitant]
     Dosage: 80MG/DAY
     Route: 030
     Dates: start: 20050311

REACTIONS (10)
  - BLOOD CREATINE PHOSPHOKINASE INCREASED [None]
  - BODY TEMPERATURE INCREASED [None]
  - COMPARTMENT SYNDROME [None]
  - EYE ROLLING [None]
  - MALAISE [None]
  - MUSCLE CONTRACTIONS INVOLUNTARY [None]
  - MUSCULOSKELETAL STIFFNESS [None]
  - NEUROLEPTIC MALIGNANT SYNDROME [None]
  - PLATELET COUNT INCREASED [None]
  - SKIN GRAFT [None]
